FAERS Safety Report 17099149 (Version 1)
Quarter: 2019Q4

REPORT INFORMATION
  Report Type: Spontaneous
  Country: US (occurrence: US)
  Receive Date: 20191130
  Receipt Date: 20191130
  Transmission Date: 20200122
  Serious: Yes (Life-Threatening, Other)
  Sender: FDA-Public Use
  Company Number: None

PATIENT
  Age: 63 Year
  Sex: Female
  Weight: 56.25 kg

DRUGS (5)
  1. OMEGA-3 ACIDS [Concomitant]
     Active Substance: OMEGA-3 FATTY ACIDS
  2. BONE RESTORE [Concomitant]
  3. GLATIRAMER INJ 40MG/ML [Suspect]
     Active Substance: GLATIRAMER
     Indication: RELAPSING-REMITTING MULTIPLE SCLEROSIS
     Dosage: ?          OTHER FREQUENCY:3 TIMES A WEEK;OTHER ROUTE:USED MYLAN INJECTOR?
     Dates: start: 20190427, end: 20190502
  4. TYLENOL [Concomitant]
     Active Substance: ACETAMINOPHEN
  5. MULTIVITAMIN [Concomitant]
     Active Substance: VITAMINS

REACTIONS (15)
  - Dyspnoea [None]
  - Chest discomfort [None]
  - Angina pectoris [None]
  - Headache [None]
  - Chills [None]
  - Contusion [None]
  - Renal pain [None]
  - Fall [None]
  - Sinus pain [None]
  - Back pain [None]
  - Chest pain [None]
  - Flushing [None]
  - Cough [None]
  - Feeling hot [None]
  - Tremor [None]

NARRATIVE: CASE EVENT DATE: 20190502
